FAERS Safety Report 5413146-6 (Version None)
Quarter: 2007Q3

REPORT INFORMATION
  Report Type: 
  Country: None (occurrence: None)
  Receive Date: 20070810
  Receipt Date: 20070730
  Transmission Date: 20080115
  Serious: Yes (Hospitalization)
  Sender: FDA-Public Use
  Company Number: GXKR2007US06501

PATIENT
  Age: 64 Year
  Sex: Male

DRUGS (1)
  1. PREDNISONE [Suspect]
     Indication: FACIAL PALSY
     Dosage: 30 MG, BID, ORAL, 6 MG, BID, ORAL
     Route: 048

REACTIONS (7)
  - BLOOD AMYLASE INCREASED [None]
  - BLOOD POTASSIUM INCREASED [None]
  - FATIGUE [None]
  - HYPERGLYCAEMIA [None]
  - MALAISE [None]
  - PANCREATITIS [None]
  - RENAL IMPAIRMENT [None]
